FAERS Safety Report 10253615 (Version 1)
Quarter: 2014Q2

REPORT INFORMATION
  Report Type: Report from Study
  Country: US (occurrence: US)
  Receive Date: 20140623
  Receipt Date: 20140623
  Transmission Date: 20141212
  Serious: Yes (Death)
  Sender: FDA-Public Use
  Company Number: US-NAPPMUNDI-USA-2014-0115012

PATIENT
  Sex: Male

DRUGS (2)
  1. OXY CR TAB [Suspect]
     Indication: ARTHRALGIA
     Dosage: 40 MG, Q8H
     Route: 048
     Dates: start: 20140512, end: 20140612
  2. OXY CR TAB [Suspect]
     Dosage: UNK
     Route: 048
     Dates: start: 20130615

REACTIONS (1)
  - Chronic obstructive pulmonary disease [Fatal]
